FAERS Safety Report 17012589 (Version 3)
Quarter: 2020Q4

REPORT INFORMATION
  Report Type: Spontaneous
  Country: US (occurrence: US)
  Receive Date: 20191109
  Receipt Date: 20201202
  Transmission Date: 20210113
  Serious: Yes (Other)
  Sender: FDA-Public Use
  Company Number: US-GLAXOSMITHKLINE-US2019AMR198988

PATIENT
  Age: 62 Year
  Sex: Female

DRUGS (2)
  1. BENLYSTA [Suspect]
     Active Substance: BELIMUMAB
     Dosage: 125 MG, CYC
     Route: 065
     Dates: end: 201910
  2. BENLYSTA [Suspect]
     Active Substance: BELIMUMAB
     Indication: SYSTEMIC LUPUS ERYTHEMATOSUS
     Dosage: 10 MG, UNK
     Route: 065

REACTIONS (2)
  - Thyroid cancer [Unknown]
  - Thyroidectomy [Unknown]

NARRATIVE: CASE EVENT DATE: 201910
